FAERS Safety Report 20520478 (Version 2)
Quarter: 2022Q1

REPORT INFORMATION
  Report Type: Spontaneous
  Country: US (occurrence: US)
  Receive Date: 20220225
  Receipt Date: 20220324
  Transmission Date: 20220423
  Serious: No
  Sender: FDA-Public Use
  Company Number: US-SUNOVION-2022SUN000591

PATIENT
  Age: 63 Year
  Sex: Female
  Weight: 40.4 kg

DRUGS (15)
  1. KYNMOBI [Suspect]
     Active Substance: APOMORPHINE HYDROCHLORIDE
     Indication: Parkinson^s disease
     Dosage: 10 MG (PLACE ONE SUBLINGUAL Q 2 HOURS MAXIMUM OF 5 DOSES PER DAY)
     Route: 060
     Dates: end: 20220207
  2. AMANTADINE HYDROCHLORIDE [Concomitant]
     Active Substance: AMANTADINE HYDROCHLORIDE
     Dosage: 1 CAPSULE, QD
     Route: 048
  3. CALCIUM CITRATE [Concomitant]
     Active Substance: CALCIUM CITRATE
     Route: 048
  4. DUOPA [Concomitant]
     Active Substance: CARBIDOPA\LEVODOPA
     Dosage: DOSE 9.8 ML @ 1.6 ML/HR/LOCKOUT 20HR EXTRA DOSE X 1 ML/LOCKOUT TIME 2 HOURS
  5. SINEMET [Concomitant]
     Active Substance: CARBIDOPA\LEVODOPA
     Dosage: TAKE UP TO TWO TABLETS A DAY AS NEEDED ALONG WITH RYTARY
     Route: 048
  6. SINEMET [Concomitant]
     Active Substance: CARBIDOPA\LEVODOPA
     Dosage: 1 TABLET, HS
     Route: 048
  7. RYTARY [Concomitant]
     Active Substance: CARBIDOPA\LEVODOPA
     Route: 048
  8. COENZYME Q10 [Concomitant]
     Active Substance: DIETARY SUPPLEMENT\UBIDECARENONE
     Dosage: 200 MG, QD
     Route: 048
  9. CARBIDOPA AND LEVODOPA [Concomitant]
     Active Substance: CARBIDOPA\LEVODOPA
     Dosage: UNK UNK, HS
     Route: 048
  10. CYANOCOBALAMIN [Concomitant]
     Active Substance: CYANOCOBALAMIN
     Route: 048
  11. OMEGA 3 [Concomitant]
     Active Substance: CAPSAICIN
     Route: 048
  12. OPICAPONE [Concomitant]
     Active Substance: OPICAPONE
     Dosage: 1 CAPSULE, HS
     Route: 048
  13. NEUPRO [Concomitant]
     Active Substance: ROTIGOTINE
     Dosage: 1 MG, QD (INTO THE SKIN)
  14. NEUPRO [Concomitant]
     Active Substance: ROTIGOTINE
     Dosage: 1 PATCH, QD (INTO THE SKIN)
     Route: 062
  15. DESYREL [Concomitant]
     Active Substance: TRAZODONE HYDROCHLORIDE
     Dosage: 100 MG, HS
     Route: 048

REACTIONS (10)
  - Oral discomfort [Recovered/Resolved]
  - Tongue dry [Recovered/Resolved]
  - Anxiety [Unknown]
  - Lip dry [Recovered/Resolved]
  - Erythema [Recovered/Resolved]
  - Flushing [Recovered/Resolved]
  - Mouth swelling [Recovered/Resolved]
  - Dry mouth [Recovered/Resolved]
  - Oral mucosal erythema [Recovered/Resolved]
  - Paraesthesia oral [Recovered/Resolved]

NARRATIVE: CASE EVENT DATE: 20220201
